FAERS Safety Report 5121388-2 (Version None)
Quarter: 2006Q4

REPORT INFORMATION
  Report Type: 
  Country: None (occurrence: None)
  Receive Date: 20061002
  Receipt Date: 20060926
  Transmission Date: 20070319
  Serious: Yes (Hospitalization)
  Sender: FDA-Public Use
  Company Number: 2006BH013612

PATIENT
  Age: 47 Year
  Sex: Female

DRUGS (1)
  1. DIANEAL [Suspect]
     Indication: RENAL FAILURE CHRONIC
     Dosage: 10L;EVERY DAY;IP
     Route: 033

REACTIONS (2)
  - ABDOMINAL PAIN [None]
  - PERITONEAL HAEMORRHAGE [None]
